FAERS Safety Report 20645432 (Version 5)
Quarter: 2023Q2

REPORT INFORMATION
  Report Type: Spontaneous
  Country: US (occurrence: US)
  Receive Date: 20220328
  Receipt Date: 20230510
  Transmission Date: 20230721
  Serious: No
  Sender: FDA-Public Use
  Company Number: US-PFIZER INC-202200452321

PATIENT
  Age: 60 Year
  Sex: Male
  Weight: 122.45 kg

DRUGS (2)
  1. IBRANCE [Suspect]
     Active Substance: PALBOCICLIB
     Indication: Neoplasm malignant
     Dosage: 125 MG
  2. IBRANCE [Suspect]
     Active Substance: PALBOCICLIB
     Indication: Peripheral swelling

REACTIONS (6)
  - Neoplasm progression [Not Recovered/Not Resolved]
  - Post-traumatic stress disorder [Unknown]
  - Pain in extremity [Unknown]
  - Bone pain [Unknown]
  - Amnesia [Unknown]
  - Cancer pain [Unknown]
